FAERS Safety Report 16693626 (Version 2)
Quarter: 2019Q3

REPORT INFORMATION
  Report Type: Report from Study
  Country: JP (occurrence: JP)
  Receive Date: 20190812
  Receipt Date: 20190905
  Transmission Date: 20191004
  Serious: Yes (Hospitalization)
  Sender: FDA-Public Use
  Company Number: JP-EISAI MEDICAL RESEARCH-EC-2019-060317

PATIENT
  Age: 69 Year
  Sex: Male
  Weight: 64 kg

DRUGS (14)
  1. FEBURIC [Concomitant]
     Active Substance: FEBUXOSTAT
  2. PEMBROLIZUMAB. [Suspect]
     Active Substance: PEMBROLIZUMAB
     Indication: BLADDER CANCER
     Route: 041
     Dates: start: 20170119, end: 20180607
  3. THYRADIN S [Concomitant]
     Active Substance: LEVOTHYROXINE SODIUM
  4. PREDNISOLONE. [Concomitant]
     Active Substance: PREDNISOLONE
  5. ARTIST [Concomitant]
     Active Substance: CARVEDILOL
  6. BAYASPIRIN [Suspect]
     Active Substance: ASPIRIN
     Indication: MYOCARDIAL INFARCTION
     Route: 048
     Dates: start: 2006, end: 20190804
  7. LANSOPRAZOLE. [Concomitant]
     Active Substance: LANSOPRAZOLE
  8. ISOSORBIDE MONONITRATE. [Concomitant]
     Active Substance: ISOSORBIDE MONONITRATE
  9. PITAVASTATIN CA [Concomitant]
     Active Substance: PITAVASTATIN CALCIUM
  10. DAIPHEN [Concomitant]
     Active Substance: SULFAMETHOXAZOLE\TRIMETHOPRIM
  11. JANUVIA [Concomitant]
     Active Substance: SITAGLIPTIN PHOSPHATE
  12. LENVATINIB [Suspect]
     Active Substance: LENVATINIB
     Indication: BLADDER CANCER
     Route: 048
     Dates: start: 20170119, end: 20180718
  13. LENVATINIB [Suspect]
     Active Substance: LENVATINIB
     Route: 048
     Dates: start: 20180719, end: 20190803
  14. ETHYL ICOSAPENTATE [Concomitant]
     Active Substance: ICOSAPENT ETHYL

REACTIONS (1)
  - Pulmonary haemorrhage [Recovered/Resolved]

NARRATIVE: CASE EVENT DATE: 20190804
